FAERS Safety Report 5280141-X (Version None)
Quarter: 2007Q1

REPORT INFORMATION
  Report Type: 
  Country: None (occurrence: None)
  Receive Date: 20061215
  Receipt Date: 20060210
  Transmission Date: 20070707
  Serious: Yes (Other)
  Sender: FDA-Public Use
  Company Number: HQWYE798214FEB06

PATIENT
  Age: 31 Year
  Sex: Female

DRUGS (4)
  1. EFFEXOR XR [Suspect]
     Dosage: 150 MG 1X PER 1 DAY
     Dates: start: 20051101
  2. LOPRESSOR [Concomitant]
  3. PROTONIX [Concomitant]
  4. VYTORIN [Concomitant]

REACTIONS (4)
  - DEPRESSION [None]
  - INSOMNIA [None]
  - SLUGGISHNESS [None]
  - TACHYCARDIA [None]
